FAERS Safety Report 6998313-2 (Version None)
Quarter: 2010Q3

REPORT INFORMATION
  Report Type: 
  Country: None (occurrence: None)
  Receive Date: 20100920
  Receipt Date: 20100322
  Transmission Date: 20110219
  Serious: No
  Sender: FDA-Public Use
  Company Number: US-ASTRAZENECA-2010SE12793

PATIENT
  Age: 32 Year
  Sex: Female
  Weight: 59 kg

DRUGS (6)
  1. SEROQUEL [Suspect]
     Indication: BIPOLAR DISORDER
     Route: 048
     Dates: start: 20010101, end: 20060101
  2. SEROQUEL [Suspect]
     Indication: DEPRESSION
     Route: 048
     Dates: start: 20010101, end: 20060101
  3. SEROQUEL [Suspect]
     Indication: SLEEP DISORDER
     Route: 048
     Dates: start: 20010101, end: 20060101
  4. SEROQUEL [Suspect]
     Route: 048
     Dates: start: 20100201
  5. SEROQUEL [Suspect]
     Route: 048
     Dates: start: 20100201
  6. SEROQUEL [Suspect]
     Route: 048
     Dates: start: 20100201

REACTIONS (3)
  - IMPAIRED SELF-CARE [None]
  - INSOMNIA [None]
  - WEIGHT INCREASED [None]
